FAERS Safety Report 9726056 (Version 2)
Quarter: 2013Q4

REPORT INFORMATION
  Report Type: Spontaneous
  Country: TH (occurrence: TH)
  Receive Date: 20131203
  Receipt Date: 20131209
  Transmission Date: 20140711
  Serious: No
  Sender: FDA-Public Use
  Company Number: TH-009507513-1311THA011769

PATIENT
  Sex: 0

DRUGS (1)
  1. IMPLANON [Suspect]
     Indication: CONTRACEPTION
     Dosage: UNK
     Route: 064
     Dates: start: 20100909, end: 20130604

REACTIONS (3)
  - Foetal macrosomia [Not Recovered/Not Resolved]
  - Pyelocaliectasis [Recovered/Resolved]
  - Foetal exposure during pregnancy [Recovered/Resolved]
